FAERS Safety Report 18016029 (Version 4)
Quarter: 2020Q3

REPORT INFORMATION
  Report Type: Report from Study
  Country: CA (occurrence: CA)
  Receive Date: 20200713
  Receipt Date: 20200810
  Transmission Date: 20201103
  Serious: Yes (Death)
  Sender: FDA-Public Use
  Company Number: CA-HLS-202000845

PATIENT
  Age: 67 Year
  Sex: Female

DRUGS (4)
  1. ATIVAN [Concomitant]
     Active Substance: LORAZEPAM
     Route: 065
  2. CLOZARIL [Suspect]
     Active Substance: CLOZAPINE
     Indication: SCHIZOPHRENIA
     Route: 048
     Dates: start: 20171106, end: 20200614
  3. CLOZARIL [Suspect]
     Active Substance: CLOZAPINE
     Indication: SCHIZOPHRENIA
     Dosage: STARTED SEVERAL YEARS AGO?50 MG AM + 300 MG HS
     Route: 065
  4. ZYPREXA [Concomitant]
     Active Substance: OLANZAPINE
     Dosage: 7.5 MG
     Route: 065

REACTIONS (1)
  - Neoplasm [Fatal]

NARRATIVE: CASE EVENT DATE: 20200614
